FAERS Safety Report 25974100 (Version 2)
Quarter: 2025Q4

REPORT INFORMATION
  Report Type: Spontaneous
  Country: CN (occurrence: CN)
  Receive Date: 20251029
  Receipt Date: 20251106
  Transmission Date: 20260118
  Serious: Yes (Other)
  Sender: NOVARTIS
  Company Number: CN-002147023-NVSC2025CN162999

PATIENT
  Age: 68 Year
  Sex: Female

DRUGS (2)
  1. CYCLOSPORINE [Suspect]
     Active Substance: CYCLOSPORINE
     Indication: Product used for unknown indication
     Dosage: 2 DOSAGE FORM, BID (2 PILLS EACH TIME (25MG EACH PILL)
     Route: 048
     Dates: start: 202504, end: 202505
  2. CYCLOSPORINE [Suspect]
     Active Substance: CYCLOSPORINE
     Dosage: (2 PILLS IN THE MORNING AND 1 PILL IN THE EVENING), BID
     Route: 048

REACTIONS (7)
  - Toxicity to various agents [Unknown]
  - Drug level increased [Unknown]
  - Drug level decreased [Unknown]
  - Lipids increased [Unknown]
  - Blood triglycerides increased [Unknown]
  - Low density lipoprotein increased [Unknown]
  - Blood uric acid increased [Unknown]

NARRATIVE: CASE EVENT DATE: 20250101
